FAERS Safety Report 21086358 (Version 1)
Quarter: 2022Q3

REPORT INFORMATION
  Report Type: Spontaneous
  Country: US (occurrence: US)
  Receive Date: 20220715
  Receipt Date: 20220715
  Transmission Date: 20221027
  Serious: No
  Sender: FDA-Public Use
  Company Number: US-SUN PHARMACEUTICAL INDUSTRIES LTD-2022R1-327501

PATIENT
  Age: 74 Year
  Sex: Female

DRUGS (1)
  1. AZELASTINE [Suspect]
     Active Substance: AZELASTINE
     Indication: Hypersensitivity
     Dosage: 137 MICROGRAM, BID
     Route: 065
     Dates: start: 20220207, end: 20220207

REACTIONS (3)
  - Rhinorrhoea [Recovered/Resolved]
  - Sinusitis [Recovered/Resolved]
  - Erythema [Recovered/Resolved]
